FAERS Safety Report 19807730 (Version 4)
Quarter: 2021Q4

REPORT INFORMATION
  Report Type: Report from Study
  Country: US (occurrence: US)
  Receive Date: 20210908
  Receipt Date: 20211102
  Transmission Date: 20220303
  Serious: No
  Sender: FDA-Public Use
  Company Number: NVSC2021US204029

PATIENT
  Sex: Male

DRUGS (1)
  1. ENTRESTO [Suspect]
     Active Substance: SACUBITRIL\VALSARTAN
     Indication: Product used for unknown indication
     Dosage: 1 DF
     Route: 065

REACTIONS (12)
  - Amnesia [Unknown]
  - Confusional state [Unknown]
  - Sleep disorder [Unknown]
  - Frustration tolerance decreased [Unknown]
  - Flatulence [Unknown]
  - Weight increased [Unknown]
  - Crying [Unknown]
  - Pain [Unknown]
  - Musculoskeletal discomfort [Unknown]
  - Fatigue [Unknown]
  - Cough [Unknown]
  - Product dose omission issue [Unknown]
